FAERS Safety Report 11466878 (Version 12)
Quarter: 2016Q1

REPORT INFORMATION
  Report Type: Report from Study
  Country: CA (occurrence: CA)
  Receive Date: 20150908
  Receipt Date: 20160212
  Transmission Date: 20160525
  Serious: Yes (Death, Hospitalization, Other)
  Sender: FDA-Public Use
  Company Number: CA-ROCHE-1534543

PATIENT
  Age: 55 Year
  Sex: Male
  Weight: 79 kg

DRUGS (9)
  1. AVASTIN [Suspect]
     Active Substance: BEVACIZUMAB
     Route: 042
     Dates: start: 20160127, end: 20160127
  2. KEPPRA [Concomitant]
     Active Substance: LEVETIRACETAM
  3. AVASTIN [Suspect]
     Active Substance: BEVACIZUMAB
     Route: 042
     Dates: start: 20151007
  4. MORPHINE [Suspect]
     Active Substance: MORPHINE
     Indication: PRODUCT USED FOR UNKNOWN INDICATION
     Route: 065
  5. AVASTIN [Suspect]
     Active Substance: BEVACIZUMAB
     Indication: GLIOBLASTOMA MULTIFORME
     Route: 042
     Dates: start: 20141224
  6. DECADRON [Suspect]
     Active Substance: DEXAMETHASONE
     Route: 065
  7. DECADRON [Suspect]
     Active Substance: DEXAMETHASONE
     Indication: PRODUCT USED FOR UNKNOWN INDICATION
     Route: 065
  8. RANITIDINE [Concomitant]
     Active Substance: RANITIDINE\RANITIDINE HYDROCHLORIDE
  9. THIAMINE. [Concomitant]
     Active Substance: THIAMINE

REACTIONS (33)
  - Cough [Not Recovered/Not Resolved]
  - Pyrexia [Unknown]
  - Paraesthesia [Recovering/Resolving]
  - Gait disturbance [Unknown]
  - Mobility decreased [Not Recovered/Not Resolved]
  - Asthenia [Unknown]
  - Diarrhoea [Unknown]
  - Headache [Unknown]
  - Renal failure [Unknown]
  - Lymphadenopathy [Not Recovered/Not Resolved]
  - Hypertension [Recovering/Resolving]
  - Muscular weakness [Not Recovered/Not Resolved]
  - Myalgia [Unknown]
  - Ear pain [Not Recovered/Not Resolved]
  - Nervousness [Unknown]
  - Abdominal discomfort [Not Recovered/Not Resolved]
  - Oropharyngeal pain [Not Recovered/Not Resolved]
  - Hiccups [Not Recovered/Not Resolved]
  - Nausea [Unknown]
  - Vomiting [Unknown]
  - Insomnia [Unknown]
  - Weight decreased [Not Recovered/Not Resolved]
  - Skin disorder [Recovered/Resolved]
  - Fatigue [Not Recovered/Not Resolved]
  - Heart rate increased [Unknown]
  - Movement disorder [Not Recovered/Not Resolved]
  - Oral herpes [Not Recovered/Not Resolved]
  - Pneumonia [Not Recovered/Not Resolved]
  - Oxygen saturation decreased [Unknown]
  - Headache [Unknown]
  - Partial seizures [Recovered/Resolved]
  - Protein urine present [Recovered/Resolved]
  - Blood pressure increased [Unknown]

NARRATIVE: CASE EVENT DATE: 2015
